FAERS Safety Report 15803912 (Version 1)
Quarter: 2019Q1

REPORT INFORMATION
  Report Type: Spontaneous
  Country: GB (occurrence: GB)
  Receive Date: 20190109
  Receipt Date: 20190109
  Transmission Date: 20190417
  Serious: Yes (Other)
  Sender: FDA-Public Use
  Company Number: None

PATIENT
  Age: 35 Year
  Sex: Female
  Weight: 59 kg

DRUGS (2)
  1. ROACCUTANE [Concomitant]
     Active Substance: ISOTRETINOIN
  2. SPIRONOLACTONE. [Suspect]
     Active Substance: SPIRONOLACTONE
     Indication: ACNE
     Dates: start: 20160529, end: 20161015

REACTIONS (4)
  - Breast swelling [None]
  - Breast tenderness [None]
  - Erythema [None]
  - Breast prosthesis user [None]

NARRATIVE: CASE EVENT DATE: 20161015
